FAERS Safety Report 21232319 (Version 6)
Quarter: 2022Q4

REPORT INFORMATION
  Report Type: Spontaneous
  Country: DE (occurrence: DE)
  Receive Date: 20220819
  Receipt Date: 20221115
  Transmission Date: 20230113
  Serious: Yes (Hospitalization)
  Sender: FDA-Public Use
  Company Number: DE-SAMSUNG BIOEPIS-SB-2022-18850

PATIENT
  Age: 70 Year
  Sex: Female
  Weight: 68.4 kg

DRUGS (20)
  1. CARBOPLATIN [Suspect]
     Active Substance: CARBOPLATIN
     Indication: Breast cancer female
     Route: 065
     Dates: start: 20220713, end: 20220720
  2. CARBOPLATIN [Suspect]
     Active Substance: CARBOPLATIN
     Dosage: Q21D CARBOPLATIN WAS REDUCED FROM AUC 6 TO AUC 4 (TOTAL DOSE 233 MG)
     Route: 065
     Dates: start: 20220803, end: 20220810
  3. CARBOPLATIN [Suspect]
     Active Substance: CARBOPLATIN
     Route: 065
     Dates: end: 20220906
  4. PERJETA [Suspect]
     Active Substance: PERTUZUMAB
     Indication: Breast cancer female
     Dosage: Q21D
     Route: 065
     Dates: start: 20220713, end: 20220720
  5. PERJETA [Suspect]
     Active Substance: PERTUZUMAB
     Route: 065
     Dates: end: 20220906
  6. ONTRUZANT [Suspect]
     Active Substance: TRASTUZUMAB-DTTB
     Indication: Breast cancer female
     Route: 065
     Dates: start: 20220713, end: 20220720
  7. ONTRUZANT [Suspect]
     Active Substance: TRASTUZUMAB-DTTB
     Route: 065
     Dates: end: 20220906
  8. ONTRUZANT [Suspect]
     Active Substance: TRASTUZUMAB-DTTB
     Route: 065
     Dates: end: 20220824
  9. ONTRUZANT [Suspect]
     Active Substance: TRASTUZUMAB-DTTB
     Route: 065
  10. DOCETAXEL [Suspect]
     Active Substance: DOCETAXEL
     Indication: Breast cancer female
     Route: 065
     Dates: start: 20220713, end: 20220720
  11. DOCETAXEL [Suspect]
     Active Substance: DOCETAXEL
     Route: 065
     Dates: end: 20220906
  12. DOCETAXEL [Suspect]
     Active Substance: DOCETAXEL
     Dosage: Q21D DOCETAXEL WAS REDUCED FROM 75 MG/KG TO 60 M/KG (TOTAL DOSE 105.6 MG)
     Route: 065
     Dates: start: 20220803, end: 20220810
  13. DIMENHYDRINATE [Concomitant]
     Active Substance: DIMENHYDRINATE
     Indication: Antiemetic supportive care
     Dates: start: 20220906
  14. SITAGLIPTIN PHOSPHATE [Concomitant]
     Active Substance: SITAGLIPTIN PHOSPHATE
     Indication: Diabetes mellitus
     Dates: start: 20200630
  15. ENOXAPARIN SODIUM [Concomitant]
     Active Substance: ENOXAPARIN SODIUM
     Indication: Thrombosis prophylaxis
     Dates: start: 20220906
  16. METFORMIN HYDROCHLORIDE [Concomitant]
     Active Substance: METFORMIN HYDROCHLORIDE
     Indication: Diabetes mellitus
     Dates: start: 20200630
  17. ATORVASTATIN [Concomitant]
     Active Substance: ATORVASTATIN
     Indication: Blood cholesterol increased
     Dates: start: 20200630
  18. METOPROLOL SUCCINATE [Concomitant]
     Active Substance: METOPROLOL SUCCINATE
     Indication: Hypertension
     Dates: start: 20200630
  19. POTASSIUM CHLORIDE [Concomitant]
     Active Substance: POTASSIUM CHLORIDE
     Indication: Product used for unknown indication
     Dates: start: 20220609, end: 20220609
  20. CALCIUM CHLORIDE\MAGNESIUM CHLORIDE\POTASSIUM CHLORIDE\SODIUM ACETATE\ [Concomitant]
     Active Substance: CALCIUM CHLORIDE\MAGNESIUM CHLORIDE\POTASSIUM CHLORIDE\SODIUM ACETATE\SODIUM CHLORIDE
     Indication: Dehydration
     Dates: start: 20220609

REACTIONS (5)
  - Infection [Recovered/Resolved]
  - Diarrhoea [Recovered/Resolved]
  - Leukocytosis [Unknown]
  - Renal failure [Recovered/Resolved]
  - Blood creatinine increased [Recovered/Resolved]

NARRATIVE: CASE EVENT DATE: 20220720
